FAERS Safety Report 23102751 (Version 1)
Quarter: 2023Q4

REPORT INFORMATION
  Report Type: Spontaneous
  Country: DE (occurrence: None)
  Receive Date: 20231025
  Receipt Date: 20231025
  Transmission Date: 20240109
  Serious: Yes (Hospitalization)
  Sender: FDA-Public Use
  Company Number: 2023A239341

PATIENT
  Sex: Male
  Weight: 9 kg

DRUGS (1)
  1. BEYFORTUS [Suspect]
     Active Substance: NIRSEVIMAB-ALIP
     Indication: Product used for unknown indication
     Dosage: 1
     Dates: start: 20230928

REACTIONS (5)
  - Pyrexia [Not Recovered/Not Resolved]
  - Fontanelle bulging [Not Recovered/Not Resolved]
  - Somnolence [Not Recovered/Not Resolved]
  - Meningitis [Not Recovered/Not Resolved]
  - Screaming [Not Recovered/Not Resolved]

NARRATIVE: CASE EVENT DATE: 20231013
